FAERS Safety Report 15764939 (Version 1)
Quarter: 2018Q4

REPORT INFORMATION
  Report Type: Spontaneous
  Country: FR (occurrence: FR)
  Receive Date: 20181227
  Receipt Date: 20181227
  Transmission Date: 20190205
  Serious: Yes (Hospitalization, Disabling, Other)
  Sender: FDA-Public Use
  Company Number: FR-SA-2018SA299492

PATIENT
  Age: 38 Year
  Sex: Female
  Weight: 65 kg

DRUGS (4)
  1. THYROGEN [Suspect]
     Active Substance: THYROTROPIN ALFA
     Dosage: 1 DF, QD
     Route: 030
     Dates: start: 20160702, end: 20160702
  2. LEVOTHYROX [Concomitant]
     Active Substance: LEVOTHYROXINE
     Dosage: 1 DF, QD
     Route: 065
  3. IODINE (131 I) [Concomitant]
     Active Substance: SODIUM IODIDE I-131
     Dosage: 100 NCI
     Route: 065
     Dates: start: 20160704
  4. THYROGEN [Suspect]
     Active Substance: THYROTROPIN ALFA
     Dosage: 1 DF, QD
     Route: 030
     Dates: start: 20160703, end: 20160703

REACTIONS (1)
  - Ischaemic stroke [Recovered/Resolved with Sequelae]

NARRATIVE: CASE EVENT DATE: 20160822
